FAERS Safety Report 4494641-3 (Version None)
Quarter: 2005Q1

REPORT INFORMATION
  Report Type: 
  Country: None (occurrence: None)
  Receive Date: 20041103
  Receipt Date: 20041020
  Transmission Date: 20050727
  Serious: Yes (Other)
  Sender: FDA-Public Use
  Company Number: US014149

PATIENT
  Sex: Female

DRUGS (2)
  1. MODAFINIL [Suspect]
     Indication: NARCOLEPSY
     Dates: start: 20030401
  2. AERIUS [Suspect]

REACTIONS (2)
  - DRUG INTERACTION [None]
  - SUICIDE ATTEMPT [None]
